FAERS Safety Report 8965614 (Version 2)
Quarter: 2013Q1

REPORT INFORMATION
  Report Type: Spontaneous
  Country: GB (occurrence: None)
  Receive Date: 20121205
  Receipt Date: 20121218
  Transmission Date: 20140127
  Serious: Yes (Other)
  Sender: FDA-Public Use
  Company Number: AUR-APL-2012-05097

PATIENT
  Sex: Male

DRUGS (2)
  1. SIMVASTATIN (SIMVASTATIN) [Suspect]
     Indication: CORONARY ARTERY BYPASS
  2. DILTIAZEM [Suspect]
     Indication: CORONARY ARTERY BYPASS
     Dosage: (60 MG, 3 IN 1 D)

REACTIONS (4)
  - Medication error [None]
  - Bladder dysfunction [None]
  - Local swelling [None]
  - Inappropriate schedule of drug administration [None]
